FAERS Safety Report 9413043 (Version 5)
Quarter: 2015Q1

REPORT INFORMATION
  Report Type: Spontaneous
  Country: FR (occurrence: FR)
  Receive Date: 20130722
  Receipt Date: 20150325
  Transmission Date: 20150721
  Serious: Yes (Other)
  Sender: FDA-Public Use
  Company Number: FR-GLAXOSMITHKLINE-B0900879A

PATIENT
  Sex: Male

DRUGS (13)
  1. BEFIZAL [Concomitant]
     Active Substance: BEZAFIBRATE
     Indication: HYPERCHOLESTEROLAEMIA
     Route: 065
  2. STALEVO [Concomitant]
     Active Substance: CARBIDOPA\ENTACAPONE\LEVODOPA
     Indication: PARKINSON^S DISEASE
     Route: 065
     Dates: start: 200509
  3. PHYSIOTHERAPY [Concomitant]
  4. GAVISCON [Concomitant]
     Active Substance: ALUMINUM HYDROXIDE\MAGNESIUM CARBONATE
     Indication: GASTROOESOPHAGEAL REFLUX DISEASE
     Route: 065
     Dates: start: 2002
  5. RIVOTRIL [Concomitant]
     Active Substance: CLONAZEPAM
     Route: 065
  6. REQUIP [Suspect]
     Active Substance: ROPINIROLE HYDROCHLORIDE
     Indication: PARKINSON^S DISEASE
     Route: 048
     Dates: start: 200004, end: 200804
  7. SYNVISC [Concomitant]
     Active Substance: HYALURONATE SODIUM
     Route: 065
  8. MODOPAR [Concomitant]
     Active Substance: BENSERAZIDE HYDROCHLORIDE\LEVODOPA
     Indication: PARKINSON^S DISEASE
     Route: 065
     Dates: start: 200108
  9. LEXOMIL [Concomitant]
     Active Substance: BROMAZEPAM
     Route: 065
  10. LAMALINE [Concomitant]
     Active Substance: ACETAMINOPHEN\CAFFEINE\OPIUM
     Route: 065
  11. INEXIUM [Concomitant]
     Active Substance: ESOMEPRAZOLE
     Indication: ABDOMINAL PAIN UPPER
     Route: 065
  12. MOTILIUM [Concomitant]
     Active Substance: DOMPERIDONE
     Route: 065
     Dates: start: 200004
  13. DI ANTALVIC [Concomitant]
     Active Substance: ACETAMINOPHEN\PROPOXYPHENE HYDROCHLORIDE
     Route: 065

REACTIONS (21)
  - Insomnia [Unknown]
  - Eating disorder [Unknown]
  - Pathological gambling [Recovered/Resolved]
  - Nightmare [Recovering/Resolving]
  - Sexual dysfunction [Unknown]
  - Obsessive-compulsive disorder [Recovered/Resolved]
  - Depression [Unknown]
  - Sleep disorder [Unknown]
  - Abnormal behaviour [Recovered/Resolved]
  - Balance disorder [Unknown]
  - Sluggishness [Unknown]
  - Agitation [Recovering/Resolving]
  - Aggression [Recovering/Resolving]
  - Nausea [Unknown]
  - Impulsive behaviour [Recovered/Resolved]
  - Somnolence [Unknown]
  - Middle insomnia [Unknown]
  - Night sweats [Unknown]
  - Parasomnia [Recovering/Resolving]
  - Hallucination [Unknown]
  - Dopamine dysregulation syndrome [Recovered/Resolved]

NARRATIVE: CASE EVENT DATE: 2000
